FAERS Safety Report 7129627-3 (Version None)
Quarter: 2010Q4

REPORT INFORMATION
  Report Type: 
  Country: None (occurrence: None)
  Receive Date: 20101130
  Receipt Date: 20101124
  Transmission Date: 20110411
  Serious: Yes (Hospitalization, Other)
  Sender: FDA-Public Use
  Company Number: US-PFIZER INC-2010157491

PATIENT
  Sex: Female
  Weight: 61.224 kg

DRUGS (4)
  1. GEODON [Suspect]
     Indication: BIPOLAR DISORDER
     Dosage: 60 MG, 2X/DAY
     Route: 048
     Dates: start: 20090401
  2. DEPAKOTE [Concomitant]
     Indication: BIPOLAR DISORDER
     Dosage: 1000 MG, 1X/DAY
  3. LITHIUM CARBONATE [Concomitant]
     Indication: BIPOLAR DISORDER
     Dosage: 350 MG, 1X/DAY
  4. PROPRANOLOL [Concomitant]
     Indication: HYPERTENSION
     Dosage: 10 MG, 3X/DAY

REACTIONS (5)
  - ANGER [None]
  - DELUSION [None]
  - PARANOIA [None]
  - PERSONALITY CHANGE [None]
  - POOR QUALITY SLEEP [None]
